FAERS Safety Report 8313858-0 (Version None)
Quarter: 2012Q2

REPORT INFORMATION
  Report Type: 
  Country: None (occurrence: None)
  Receive Date: 20120426
  Receipt Date: 20120419
  Transmission Date: 20120825
  Serious: Yes (Hospitalization, Other)
  Sender: FDA-Public Use
  Company Number: US-BAYER-2011-069950

PATIENT
  Age: 23 Year
  Sex: Female
  Weight: 68.027 kg

DRUGS (7)
  1. YAZ [Suspect]
     Indication: PREMENSTRUAL SYNDROME
  2. MINOCYCLINE HCL [Concomitant]
     Indication: ACNE
     Dosage: UNK
     Dates: start: 20070101
  3. PROTONIX [Concomitant]
  4. YAZ [Suspect]
     Indication: ACNE
     Dosage: UNK
     Dates: start: 20090201, end: 20090901
  5. XOPENEX [Concomitant]
     Indication: ASTHMA
     Dosage: UNK
     Dates: start: 20030101
  6. IMMUNOTHERAPY [Concomitant]
     Indication: URTICARIA
     Dosage: UNK UNK, Q2WK
  7. ZYRTEC [Concomitant]

REACTIONS (9)
  - MENTAL DISORDER [None]
  - CHOLECYSTECTOMY [None]
  - CHOLECYSTITIS CHRONIC [None]
  - ABDOMINAL PAIN UPPER [None]
  - PAIN [None]
  - ANXIETY [None]
  - INJURY [None]
  - EMOTIONAL DISTRESS [None]
  - ANHEDONIA [None]
